FAERS Safety Report 7010483 (Version 2)
Quarter: 2014Q3

REPORT INFORMATION
  Report Type: Spontaneous
  Country: US (occurrence: None)
  Receive Date: 20090526
  Receipt Date: 20140701
  Transmission Date: 20150326
  Serious: Yes (Other)
  Sender: FDA-Public Use
  Company Number: 2009S1004010

PATIENT
  Age: 78 Year
  Sex: Female

DRUGS (6)
  1. ASPIRIN (ACETYLSALICYLIC ACID) [Concomitant]
     Active Substance: ASPIRIN
  2. SODIUM PHOSPHATE [Suspect]
     Active Substance: SODIUM PHOSPHATE
     Indication: COLONOSCOPY
     Dosage: PO, 2 IN 1 DAY.
     Route: 048
     Dates: start: 20080729, end: 20080729
  3. LISINOPRIL (LISINOPRIL) [Concomitant]
     Active Substance: LISINOPRIL
  4. MIRALAX [Suspect]
     Active Substance: POLYETHYLENE GLYCOL 3350
  5. SIMVASTATIN (SIMVASTATIN) [Concomitant]
     Active Substance: SIMVASTATIN
  6. HUMALOG9INSULIN LISPRO) [Concomitant]

REACTIONS (7)
  - Renal failure acute [None]
  - Renal impairment [None]
  - Hyperkalaemia [None]
  - Azotaemia [None]
  - Pruritus [None]
  - Fatigue [None]
  - Anaemia [None]

NARRATIVE: CASE EVENT DATE: 200808
